FAERS Safety Report 16094854 (Version 2)
Quarter: 2019Q2

REPORT INFORMATION
  Report Type: Spontaneous
  Country: US (occurrence: US)
  Receive Date: 20190320
  Receipt Date: 20190510
  Transmission Date: 20190711
  Serious: No
  Sender: FDA-Public Use
  Company Number: US-ASTRAZENECA-2019SE30461

PATIENT
  Age: 28786 Day
  Sex: Female
  Weight: 81.6 kg

DRUGS (1)
  1. BYDUREON BCISE [Suspect]
     Active Substance: EXENATIDE
     Indication: TYPE 2 DIABETES MELLITUS
     Route: 065
     Dates: start: 20181216

REACTIONS (5)
  - Constipation [Not Recovered/Not Resolved]
  - Muscle strain [Unknown]
  - Injection site bruising [Unknown]
  - Medication error [Unknown]
  - Device issue [Unknown]

NARRATIVE: CASE EVENT DATE: 20190304
